FAERS Safety Report 22145302 (Version 2)
Quarter: 2023Q2

REPORT INFORMATION
  Report Type: Spontaneous
  Country: DE (occurrence: DE)
  Receive Date: 20230328
  Receipt Date: 20230520
  Transmission Date: 20230721
  Serious: Yes (Hospitalization, Other)
  Sender: FDA-Public Use
  Company Number: DE-ROCHE-3216538

PATIENT
  Age: 30 Year
  Sex: Female

DRUGS (2)
  1. KESIMPTA [Suspect]
     Active Substance: OFATUMUMAB
     Indication: Product used for unknown indication
     Dosage: UNK
     Route: 065
  2. CORTISONE [Suspect]
     Active Substance: CORTISONE
     Indication: Multiple sclerosis
     Dosage: UNK
     Route: 065
     Dates: start: 2022, end: 2022

REACTIONS (18)
  - Multiple sclerosis relapse [Unknown]
  - Multiple sclerosis [Unknown]
  - Urinary retention [Unknown]
  - Bladder disorder [Unknown]
  - Hypoaesthesia [Unknown]
  - B-lymphocyte count decreased [Unknown]
  - Pain [Unknown]
  - Neuralgia [Not Recovered/Not Resolved]
  - Hyperacusis [Unknown]
  - Bone pain [Unknown]
  - Immunodeficiency [Unknown]
  - Paraesthesia [Unknown]
  - Blood test abnormal [Unknown]
  - Muscle spasticity [Not Recovered/Not Resolved]
  - Infusion related reaction [Unknown]
  - Fatigue [Unknown]
  - Nasopharyngitis [Unknown]
  - Therapeutic response decreased [Unknown]

NARRATIVE: CASE EVENT DATE: 20220101
